FAERS Safety Report 18184922 (Version 1)
Quarter: 2020Q3

REPORT INFORMATION
  Report Type: Spontaneous
  Country: US (occurrence: US)
  Receive Date: 20200824
  Receipt Date: 20200824
  Transmission Date: 20201103
  Serious: Yes (Other)
  Sender: FDA-Public Use
  Company Number: US-009507513-2008USA009362

PATIENT
  Age: 70 Year
  Sex: Female
  Weight: 56.2 kg

DRUGS (5)
  1. AMANTADINE. [Suspect]
     Active Substance: AMANTADINE HYDROCHLORIDE
     Dosage: 137 MILLIGRAM, 1 PER DAY AT BED TIME
     Route: 048
     Dates: start: 20180925
  2. SINEMET [Suspect]
     Active Substance: CARBIDOPA\LEVODOPA
     Dosage: 7 DOSAGE FORM, QD
     Route: 048
     Dates: end: 201902
  3. SINEMET [Suspect]
     Active Substance: CARBIDOPA\LEVODOPA
     Dosage: 4 DOSAGE FORM, QD
     Route: 048
     Dates: start: 201902
  4. AMANTADINE. [Suspect]
     Active Substance: AMANTADINE HYDROCHLORIDE
     Indication: DYSKINESIA
     Dosage: 137 MILLIGRAM, 1 PER DAY AT BED TIME
     Route: 048
     Dates: start: 20180925
  5. AMANTADINE. [Suspect]
     Active Substance: AMANTADINE HYDROCHLORIDE
     Dosage: 137 MILLIGRAM, 1 PER DAY AT BED TIME
     Route: 048

REACTIONS (5)
  - Hallucination, auditory [Unknown]
  - Dizziness postural [Unknown]
  - Constipation [Unknown]
  - Dyskinesia [Unknown]
  - Diarrhoea [Unknown]

NARRATIVE: CASE EVENT DATE: 201809
